FAERS Safety Report 25993914 (Version 1)
Quarter: 2025Q4

REPORT INFORMATION
  Report Type: Spontaneous
  Country: CN (occurrence: CN)
  Receive Date: 20251104
  Receipt Date: 20251104
  Transmission Date: 20260117
  Serious: Yes (Hospitalization, Other)
  Sender: ROCHE
  Company Number: CN-ROCHE-10000421259

PATIENT
  Age: 28 Year
  Sex: Male

DRUGS (2)
  1. ALECTINIB HYDROCHLORIDE [Suspect]
     Active Substance: ALECTINIB HYDROCHLORIDE
     Indication: Metastases to lymph nodes
     Route: 048
     Dates: start: 20250409, end: 20251025
  2. ALECTINIB HYDROCHLORIDE [Suspect]
     Active Substance: ALECTINIB HYDROCHLORIDE
     Indication: Metastases to pleura

REACTIONS (8)
  - Pleural effusion [Not Recovered/Not Resolved]
  - Rhinorrhoea [Unknown]
  - Nasal obstruction [Unknown]
  - Chest discomfort [Unknown]
  - Cough [Unknown]
  - Productive cough [Unknown]
  - Pulmonary oedema [Unknown]
  - Pneumonia klebsiella [Unknown]

NARRATIVE: CASE EVENT DATE: 20251006
